FAERS Safety Report 10576935 (Version 1)
Quarter: 2014Q4

REPORT INFORMATION
  Report Type: Spontaneous
  Country: GR (occurrence: GR)
  Receive Date: 20141111
  Receipt Date: 20141111
  Transmission Date: 20150529
  Serious: Yes (Death)
  Sender: FDA-Public Use
  Company Number: GR-TAKEDA-2014MPI002994

PATIENT

DRUGS (4)
  1. VELCADE [Suspect]
     Active Substance: BORTEZOMIB
     Indication: AMYLOIDOSIS
     Dosage: 1.3 MG/M2, ON DAYS 1, 4, 8, AND 11 IN CYCLES 1 AND 2
     Route: 042
  2. MELPHALAN [Suspect]
     Active Substance: MELPHALAN
     Indication: AMYLOIDOSIS
     Dosage: 0.22 MG/KG, DAILY FOR 4 CONSECUTIVE DAYS EVERY 28 DAYS
  3. VELCADE [Suspect]
     Active Substance: BORTEZOMIB
     Dosage: 1.3 MG/M2, ON DAYS 1, 8, 15, AND 22 AFTER 2 CYCLES
     Route: 042
  4. DEXAMETHASONE. [Suspect]
     Active Substance: DEXAMETHASONE
     Indication: AMYLOIDOSIS
     Dosage: 40 MG, DAILY FOR 4 CONSECUTIVE DAYS EVERY 28 DAYS

REACTIONS (2)
  - Product use issue [Unknown]
  - Death [Fatal]
